FAERS Safety Report 17955148 (Version 1)
Quarter: 2020Q2

REPORT INFORMATION
  Report Type: Spontaneous
  Country: US (occurrence: US)
  Receive Date: 20200626
  Receipt Date: 20200626
  Transmission Date: 20200714
  Serious: Yes (Other)
  Sender: FDA-Public Use
  Company Number: None

PATIENT
  Age: 82 Year
  Sex: Female
  Weight: 68.04 kg

DRUGS (8)
  1. CALCIUM [Concomitant]
     Active Substance: CALCIUM
  2. VITAMIN C [Concomitant]
     Active Substance: ASCORBIC ACID
  3. VITAMIN D [Concomitant]
     Active Substance: VITAMIN D NOS
  4. ALLERGY [Concomitant]
     Active Substance: UNSPECIFIED INGREDIENT
  5. EYE HEALTH + LUTEIN [Concomitant]
  6. NP THYROID [Suspect]
     Active Substance: LEVOTHYROXINE\LIOTHYRONINE
     Indication: HYPOTHYROIDISM
     Dosage: ?          QUANTITY:1 DF DOSAGE FORM;OTHER ROUTE:BY MOUTH/ON EMPTY STOMACH?
     Dates: start: 20190918
  7. RAMIPRIL. [Concomitant]
     Active Substance: RAMIPRIL
  8. LOW DOSE ASPIRIN [Concomitant]
     Active Substance: ASPIRIN

REACTIONS (8)
  - Cardiac flutter [None]
  - Dyspnoea [None]
  - Mood swings [None]
  - Chest discomfort [None]
  - Drug ineffective [None]
  - Asthenia [None]
  - Fatigue [None]
  - Decreased appetite [None]
